FAERS Safety Report 8303081-8 (Version None)
Quarter: 2012Q2

REPORT INFORMATION
  Report Type: 
  Country: None (occurrence: None)
  Receive Date: 20120423
  Receipt Date: 20120418
  Transmission Date: 20120825
  Serious: Yes (Hospitalization, Other)
  Sender: FDA-Public Use
  Company Number: US-AMGEN-USASP2012021992

PATIENT
  Age: 67 Year
  Sex: Female

DRUGS (18)
  1. COUMADIN [Concomitant]
     Dosage: 003 MG, UNK
  2. LIPITOR [Concomitant]
     Dosage: 003 MG, UNK
  3. PLAVIX [Concomitant]
     Dosage: 003 MG, UNK
  4. WELLBUTRIN XL [Concomitant]
     Dosage: 003 MG, UNK
  5. ADVAIR DISKUS 100/50 [Concomitant]
     Dosage: UNK
  6. CISPLATIN [Concomitant]
  7. PROZAC [Concomitant]
     Dosage: 003 MG, UNK
  8. COMBIVENT [Concomitant]
     Dosage: UNK
  9. PEMETREXED [Concomitant]
  10. LASIX [Concomitant]
     Dosage: 003 MG, UNK
  11. NORVASC [Concomitant]
     Dosage: 003 MG, UNK
  12. LEVAQUIN [Concomitant]
     Dosage: 003 MG, UNK
     Dates: start: 20120402
  13. MEDROL [Concomitant]
     Dates: start: 20120402
  14. LISINOPRIL [Concomitant]
     Dosage: 003 MG, UNK
  15. FENOFIBRATE [Concomitant]
     Dosage: 003 MG, UNK
  16. XGEVA [Suspect]
     Indication: PROPHYLAXIS
     Dates: start: 20120301
  17. POTASSIUM CHLORIDE [Concomitant]
     Dosage: 029 MEQ, UNK
  18. TOPROL-XL [Concomitant]
     Dosage: 003 MG, UNK

REACTIONS (8)
  - DYSPNOEA [None]
  - DYSPHONIA [None]
  - LOCAL SWELLING [None]
  - RESPIRATORY TRACT OEDEMA [None]
  - ROAD TRAFFIC ACCIDENT [None]
  - HYPERSENSITIVITY [None]
  - SWOLLEN TONGUE [None]
  - LIP SWELLING [None]
